FAERS Safety Report 10381331 (Version 1)
Quarter: 2014Q3

REPORT INFORMATION
  Report Type: Spontaneous
  Country: GB (occurrence: None)
  Receive Date: 20140811
  Receipt Date: 20140811
  Transmission Date: 20150326
  Serious: Yes (Life-Threatening, Other)
  Sender: FDA-Public Use
  Company Number: 2014JUB00071

PATIENT
  Age: 41 Year
  Sex: Female

DRUGS (1)
  1. ESCITALOPRAM [Suspect]
     Active Substance: ESCITALOPRAM OXALATE

REACTIONS (7)
  - Impaired driving ability [None]
  - Mania [None]
  - Alcoholism [None]
  - Tremor [None]
  - Alcohol abuse [None]
  - Suicidal ideation [None]
  - Imprisonment [None]
